FAERS Safety Report 20481117 (Version 1)
Quarter: 2022Q1

REPORT INFORMATION
  Report Type: Spontaneous
  Country: IN (occurrence: IN)
  Receive Date: 20220216
  Receipt Date: 20220216
  Transmission Date: 20220423
  Serious: Yes (Death)
  Sender: FDA-Public Use
  Company Number: IN-PFIZER INC-2019105791

PATIENT
  Age: 57 Year
  Sex: Male

DRUGS (9)
  1. SUTENT [Suspect]
     Active Substance: SUNITINIB MALATE
     Indication: Metastatic renal cell carcinoma
     Dosage: 37.5 MG, 1X/DAY (ONCE A DAY)
     Route: 048
     Dates: start: 20180901
  2. SUTENT [Suspect]
     Active Substance: SUNITINIB MALATE
     Dosage: 37.5 MG, 1X/DAY (ONCE A DAY)
     Route: 048
     Dates: start: 20180904
  3. SUTENT [Suspect]
     Active Substance: SUNITINIB MALATE
     Dosage: 50 MG, CYCLIC (FOR 14 DAYS)
     Route: 048
  4. ZOLASTA [Concomitant]
     Dosage: 4 MG, IN 100 MI NS IV OVER 30 MINS
     Route: 042
  5. ONDANSETRON HYDROCHLORIDE [Concomitant]
     Active Substance: ONDANSETRON HYDROCHLORIDE
     Dosage: 16 MG, IN 100 MI NS OVER 30 MINS
     Route: 042
  6. ACETAMINOPHEN [Concomitant]
     Active Substance: ACETAMINOPHEN
     Dosage: 1 G, STAT
     Route: 042
  7. VITAMINS [Concomitant]
     Active Substance: VITAMINS
     Dosage: IN 500 ML NS OVER 60 MINS
     Route: 042
  8. GRANISET [Concomitant]
     Dosage: 3 MG, IN 100 MI NS OVER 30 MINS
     Route: 042
  9. RABICIP [Concomitant]
     Dosage: 40 MG, STAT
     Route: 042

REACTIONS (2)
  - Death [Fatal]
  - Palmar-plantar erythrodysaesthesia syndrome [Unknown]

NARRATIVE: CASE EVENT DATE: 20190101
